FAERS Safety Report 12384747 (Version 1)
Quarter: 2016Q2

REPORT INFORMATION
  Report Type: Spontaneous
  Country: US (occurrence: None)
  Receive Date: 20160518
  Receipt Date: 20160518
  Transmission Date: 20160815
  Serious: Yes (Hospitalization)
  Sender: FDA-Public Use
  Company Number: None

PATIENT
  Age: 73 Year
  Sex: Male
  Weight: 116.4 kg

DRUGS (1)
  1. HALOPERIDOL. [Suspect]
     Active Substance: HALOPERIDOL
     Indication: SCHIZOPHRENIA
     Dosage: 50 MG OTHER IM
     Route: 030
     Dates: start: 20090908, end: 20151109

REACTIONS (4)
  - Agitation [None]
  - Condition aggravated [None]
  - Aggression [None]
  - Hypothermia [None]

NARRATIVE: CASE EVENT DATE: 20151109
